FAERS Safety Report 18316965 (Version 2)
Quarter: 2021Q4

REPORT INFORMATION
  Report Type: Spontaneous
  Country: US (occurrence: US)
  Receive Date: 20200928
  Receipt Date: 20211110
  Transmission Date: 20220303
  Serious: Yes (Other)
  Sender: FDA-Public Use
  Company Number: US-SAARTEMIS-SAC202009230167

PATIENT
  Age: 64 Year
  Sex: Female

DRUGS (1)
  1. ZANTAC [Suspect]
     Active Substance: RANITIDINE HYDROCHLORIDE
     Indication: Dyspepsia
     Dosage: UNK, FREQUENCY: OTHER
     Dates: start: 199501, end: 202001

REACTIONS (3)
  - Breast cancer stage III [Unknown]
  - Colorectal cancer stage III [Unknown]
  - Breast cancer female [Unknown]

NARRATIVE: CASE EVENT DATE: 20060601
